FAERS Safety Report 11716519 (Version 1)
Quarter: 2015Q4

REPORT INFORMATION
  Report Type: Spontaneous
  Country: US (occurrence: US)
  Receive Date: 20151109
  Receipt Date: 20151109
  Transmission Date: 20160304
  Serious: No
  Sender: FDA-Public Use
  Company Number: US-009507513-1511USA002432

PATIENT
  Age: 19 Year
  Sex: Female
  Weight: 59.42 kg

DRUGS (1)
  1. NEXPLANON [Suspect]
     Active Substance: ETONOGESTREL
     Dosage: UNK
     Route: 059
     Dates: start: 201210

REACTIONS (2)
  - Incorrect drug administration duration [Unknown]
  - Device deployment issue [Not Recovered/Not Resolved]

NARRATIVE: CASE EVENT DATE: 201210
